FAERS Safety Report 9605307 (Version 1)
Quarter: 2013Q4

REPORT INFORMATION
  Report Type: Spontaneous
  Country: US (occurrence: US)
  Receive Date: 20131008
  Receipt Date: 20131008
  Transmission Date: 20140711
  Serious: No
  Sender: FDA-Public Use
  Company Number: US-TEVA-437056USA

PATIENT
  Sex: Female
  Weight: 54.48 kg

DRUGS (2)
  1. PLAN B ONE-STEP [Suspect]
     Indication: POST COITAL CONTRACEPTION
     Dosage: 1.5 MILLIGRAM DAILY;
     Route: 048
     Dates: start: 20131006, end: 20131006
  2. CLARITIN [Concomitant]
     Indication: SEASONAL ALLERGY

REACTIONS (3)
  - Vaginal discharge [Not Recovered/Not Resolved]
  - Motion sickness [Unknown]
  - Nausea [Not Recovered/Not Resolved]
